FAERS Safety Report 7109270-2 (Version None)
Quarter: 2010Q4

REPORT INFORMATION
  Report Type: 
  Country: None (occurrence: None)
  Receive Date: 20101117
  Receipt Date: 20101109
  Transmission Date: 20110411
  Serious: Yes (Hospitalization)
  Sender: FDA-Public Use
  Company Number: DE-ABBOTT-10P-062-0684178-00

PATIENT
  Sex: Female
  Weight: 100 kg

DRUGS (6)
  1. HUMIRA [Suspect]
     Indication: PSORIATIC ARTHROPATHY
     Route: 058
     Dates: start: 20100212
  2. TEMGESIC [Concomitant]
     Indication: PSORIATIC ARTHROPATHY
     Dosage: 1.2 MG DAILY
     Dates: start: 20090508
  3. INDOMETHACIN [Concomitant]
     Indication: PSORIATIC ARTHROPATHY
     Dosage: 150 MG DAILY
     Route: 048
     Dates: start: 20101026
  4. MTX [Concomitant]
     Indication: PSORIATIC ARTHROPATHY
     Route: 058
     Dates: start: 20090416
  5. BUPRENORPHIN [Concomitant]
     Indication: PRODUCT USED FOR UNKNOWN INDICATION
     Dosage: 1.2 MG DAILY
  6. INDOMETHACIN SODIUM [Concomitant]
     Indication: PRODUCT USED FOR UNKNOWN INDICATION
     Dosage: 132 MG DAILY
     Dates: start: 20101001

REACTIONS (1)
  - BONE EROSION [None]
